FAERS Safety Report 13961804 (Version 2)
Quarter: 2017Q3

REPORT INFORMATION
  Report Type: Spontaneous
  Country: CN (occurrence: CN)
  Receive Date: 20170912
  Receipt Date: 20170925
  Transmission Date: 20171128
  Serious: Yes (Hospitalization)
  Sender: FDA-Public Use
  Company Number: CN-MERZ NORTH AMERICA, INC.-17MRZ-00265

PATIENT
  Age: 1 Year
  Sex: Female

DRUGS (1)
  1. ASCLERA [Suspect]
     Active Substance: POLIDOCANOL
     Indication: MALFORMATION VENOUS
     Route: 065

REACTIONS (10)
  - Ischaemia [Unknown]
  - Ecchymosis [Unknown]
  - Pyrexia [Unknown]
  - Pallor [Unknown]
  - Administration site discolouration [Unknown]
  - Peripheral ischaemia [Unknown]
  - Peripheral coldness [Unknown]
  - Peripheral embolism [Unknown]
  - Soft tissue necrosis [Unknown]
  - Leg amputation [Unknown]
